FAERS Safety Report 18181977 (Version 1)
Quarter: 2020Q3

REPORT INFORMATION
  Report Type: Report from Study
  Country: FR (occurrence: FR)
  Receive Date: 20200821
  Receipt Date: 20200821
  Transmission Date: 20201103
  Serious: Yes (Other)
  Sender: FDA-Public Use
  Company Number: FR-RECORDATI RARE DISEASES-2088895

PATIENT
  Age: 46 Year
  Sex: Male

DRUGS (7)
  1. BI PROFENID [Concomitant]
     Active Substance: KETOPROFEN
     Dates: start: 20180125
  2. EMLA [Concomitant]
     Active Substance: LIDOCAINE\PRILOCAINE
     Dates: start: 201707
  3. ABASAGLAR [Concomitant]
     Active Substance: INSULIN GLARGINE
     Dates: start: 201611
  4. ELUDRIL [Concomitant]
     Dates: start: 20180125
  5. AUGMENTIN [Concomitant]
     Active Substance: AMOXICILLIN\CLAVULANATE POTASSIUM
     Dates: start: 20180125
  6. CANNABIS [Concomitant]
     Active Substance: CANNABIS SATIVA SUBSP. INDICA TOP
  7. SIGNIFOR [Suspect]
     Active Substance: PASIREOTIDE DIASPARTATE
     Indication: ACROMEGALY

REACTIONS (6)
  - Pancreatic failure [Unknown]
  - Weight decreased [Recovered/Resolved]
  - Microalbuminuria [Recovered/Resolved]
  - Hepatic steatosis [Unknown]
  - Steatorrhoea [Recovered/Resolved]
  - Hyperglycaemia [Recovered/Resolved]

NARRATIVE: CASE EVENT DATE: 20180104
